FAERS Safety Report 6078675-3 (Version None)
Quarter: 2009Q1

REPORT INFORMATION
  Report Type: 
  Country: None (occurrence: None)
  Receive Date: 20090216
  Receipt Date: 20090203
  Transmission Date: 20090719
  Serious: Yes (Hospitalization, Other)
  Sender: FDA-Public Use
  Company Number: PHHY2009DK03428

PATIENT
  Sex: Female

DRUGS (5)
  1. EXFORGE [Suspect]
     Dosage: 80/5 MG
     Dates: start: 20081126
  2. ZESTORETIC [Concomitant]
     Indication: HYPERTENSION
     Dosage: 12.5/20 MG
  3. AMLODIPINE [Concomitant]
     Dosage: 5 MG
     Dates: start: 20081202
  4. ZESTRIL [Concomitant]
  5. ALPROX [Concomitant]

REACTIONS (8)
  - BLOOD CHOLESTEROL INCREASED [None]
  - BLOOD SODIUM DECREASED [None]
  - DIZZINESS [None]
  - FACE OEDEMA [None]
  - HYPERTENSION [None]
  - MALAISE [None]
  - NAUSEA [None]
  - RESTLESSNESS [None]
